FAERS Safety Report 5664504-6 (Version None)
Quarter: 2008Q1

REPORT INFORMATION
  Report Type: 
  Country: None (occurrence: None)
  Receive Date: 20080314
  Receipt Date: 20080310
  Transmission Date: 20080703
  Serious: Yes (Other)
  Sender: FDA-Public Use
  Company Number: B0511582A

PATIENT
  Age: 40 Year
  Sex: Male

DRUGS (4)
  1. ALKERAN [Suspect]
     Dosage: 140MGM2 PER DAY
     Route: 042
     Dates: start: 20070301
  2. RANIMUSTINE [Concomitant]
     Dosage: 250MGM2 PER DAY
     Route: 042
  3. ETOPOSIDE [Concomitant]
     Dosage: 400MGM2 PER DAY
     Route: 042
  4. RITUXIMAB [Concomitant]
     Dosage: 375MGM2 PER DAY
     Route: 042

REACTIONS (2)
  - HYPERAESTHESIA [None]
  - THROMBOTIC MICROANGIOPATHY [None]
